FAERS Safety Report 6264120-1 (Version None)
Quarter: 2009Q3

REPORT INFORMATION
  Report Type: 
  Country: None (occurrence: None)
  Receive Date: 20090710
  Receipt Date: 20090702
  Transmission Date: 20100115
  Serious: Yes (Hospitalization, Other)
  Sender: FDA-Public Use
  Company Number: MX-PFIZER INC-2009236350

PATIENT
  Age: 39 Year

DRUGS (2)
  1. CELEBREX [Suspect]
     Indication: DYSMENORRHOEA
     Dosage: FREQUENCY: EVERY MENSTRUAL;
     Route: 048
     Dates: start: 20081201
  2. ALL OTHER THERAPEUTIC PRODUCTS [Concomitant]
     Indication: DYSMENORRHOEA
     Route: 048

REACTIONS (1)
  - HAEMOLYTIC ANAEMIA [None]
